FAERS Safety Report 4826160-6 (Version None)
Quarter: 2005Q4

REPORT INFORMATION
  Report Type: 
  Country: None (occurrence: None)
  Receive Date: 20051014
  Receipt Date: 20050715
  Transmission Date: 20060501
  Serious: No
  Sender: FDA-Public Use
  Company Number: 2005SP001919

PATIENT
  Age: 48 Year
  Sex: Female
  Weight: 86.1834 kg

DRUGS (9)
  1. LUNESTA [Suspect]
     Dosage: 3 MG; HS; ORAL
     Route: 048
     Dates: start: 20050601, end: 20050706
  2. VENLAFAXINE HCL [Concomitant]
  3. MS CONTIN [Concomitant]
  4. TOPAMAX [Concomitant]
  5. TRAZODONE HCL [Concomitant]
  6. FOLIC ACID [Concomitant]
  7. ESTRADIOL INJ [Concomitant]
  8. METHOTREXATE [Concomitant]
  9. ZYRTEC [Concomitant]

REACTIONS (1)
  - URTICARIA [None]
